FAERS Safety Report 12416630 (Version 1)
Quarter: 2016Q2

REPORT INFORMATION
  Report Type: Spontaneous
  Country: FR (occurrence: FR)
  Receive Date: 20160530
  Receipt Date: 20160530
  Transmission Date: 20160815
  Serious: Yes (Other)
  Sender: FDA-Public Use
  Company Number: FR-JNJFOC-20130711714

PATIENT
  Age: 40 Year
  Sex: Female

DRUGS (2)
  1. XEPLION [Suspect]
     Active Substance: PALIPERIDONE PALMITATE
     Indication: DELIRIUM
     Route: 065
     Dates: start: 2013
  2. XEPLION [Suspect]
     Active Substance: PALIPERIDONE PALMITATE
     Indication: DELIRIUM
     Dosage: LAST INJECTION WAS ONE MONTH AGO.
     Route: 065

REACTIONS (2)
  - Delirium [Unknown]
  - Product use issue [Unknown]
